FAERS Safety Report 18947083 (Version 3)
Quarter: 2021Q3

REPORT INFORMATION
  Report Type: Other
  Country: AU (occurrence: AU)
  Receive Date: 20210226
  Receipt Date: 20210909
  Transmission Date: 20211014
  Serious: Yes (Hospitalization, Other)
  Sender: FDA-Public Use
  Company Number: AU-TOLMAR, INC.-21AU025645

PATIENT
  Age: 86 Year
  Sex: Male

DRUGS (1)
  1. ELIGARD [Suspect]
     Active Substance: LEUPROLIDE ACETATE
     Indication: PROSTATE CANCER
     Dosage: 22.5 MILLIGRAM, Q 3 MONTH
     Dates: start: 20201125

REACTIONS (6)
  - Pleural effusion [Unknown]
  - Arthropathy [Unknown]
  - Post procedural haematoma [Not Recovered/Not Resolved]
  - Coronary artery disease [Unknown]
  - Cardiac disorder [Unknown]
  - Adrenal disorder [Unknown]

NARRATIVE: CASE EVENT DATE: 202102
